FAERS Safety Report 9852084 (Version 1)
Quarter: 2014Q1

REPORT INFORMATION
  Report Type: Spontaneous
  Country: US (occurrence: US)
  Receive Date: 20140129
  Receipt Date: 20140129
  Transmission Date: 20141002
  Serious: Yes (Other)
  Sender: FDA-Public Use
  Company Number: US-ASTRAZENECA-2014SE04551

PATIENT
  Age: 56 Year
  Sex: Female

DRUGS (3)
  1. ATENOLOL [Suspect]
     Indication: BLOOD PRESSURE ABNORMAL
  2. EXFORGE [Concomitant]
  3. DIFFERENT CREAMS THAT HAD STEROIDS [Concomitant]
     Indication: ECZEMA

REACTIONS (4)
  - Cerebrovascular accident [Unknown]
  - Eczema [Unknown]
  - Visual impairment [Unknown]
  - Rash [Unknown]
